FAERS Safety Report 5382080-2 (Version None)
Quarter: 2007Q3

REPORT INFORMATION
  Report Type: 
  Country: None (occurrence: None)
  Receive Date: 20070705
  Receipt Date: 20070621
  Transmission Date: 20080115
  Serious: Yes (Life-Threatening, Hospitalization, Other)
  Sender: FDA-Public Use
  Company Number: 2007-01120

PATIENT
  Age: 78 Year
  Sex: Female
  Weight: 78.4 kg

DRUGS (21)
  1. VELCADE [Suspect]
     Indication: MULTIPLE MYELOMA
     Dosage: SEE IMAGE
     Route: 040
     Dates: start: 20070327, end: 20070330
  2. VELCADE [Suspect]
     Indication: MULTIPLE MYELOMA
     Dosage: SEE IMAGE
     Route: 040
     Dates: start: 20070521, end: 20070621
  3. VELCADE [Suspect]
     Indication: MULTIPLE MYELOMA
     Dosage: SEE IMAGE
     Route: 040
     Dates: start: 20060601
  4. DOXIL [Suspect]
     Indication: MULTIPLE MYELOMA
     Dosage: 30.00 MG/M2, INTRAVENOUS
     Route: 042
     Dates: start: 20070330, end: 20070330
  5. DOXIL [Suspect]
     Indication: MULTIPLE MYELOMA
     Dosage: 30.00 MG/M2, INTRAVENOUS
     Route: 042
     Dates: start: 20070614
  6. PALONOSETRON (ALOXIPRIN) [Concomitant]
  7. DEXAMETHASONE [Concomitant]
  8. PROCHLORPERAZINE MALEATE [Concomitant]
  9. COMPAZINE [Concomitant]
  10. COUMADIN [Concomitant]
  11. ASPIRIN [Concomitant]
  12. MAGNESIUM OXIDE (MAGNESIUM OXIDE) [Concomitant]
  13. LASIX [Concomitant]
  14. TOPROL-XL [Concomitant]
  15. MIACALCIN [Concomitant]
  16. CALCITRIOL [Concomitant]
  17. PROTONIX [Concomitant]
  18. CALCIUM CARBONATE (CALCIUM CARBONATE) [Concomitant]
  19. ZOMETA [Concomitant]
  20. ERYTHROPOIETIN (ERYTHROPOIETIN) [Concomitant]
  21. LENALIDOMIDE [Concomitant]

REACTIONS (36)
  - ANAEMIA [None]
  - ATELECTASIS [None]
  - CARDIAC FAILURE CONGESTIVE [None]
  - CARDIOTOXICITY [None]
  - COMPRESSION FRACTURE [None]
  - CONDITION AGGRAVATED [None]
  - CORONARY ARTERY DISEASE [None]
  - DRUG TOXICITY [None]
  - EPISTAXIS [None]
  - HEPATIC CYST [None]
  - HYPERHIDROSIS [None]
  - HYPERKALAEMIA [None]
  - HYPERSENSITIVITY [None]
  - HYPOTENSION [None]
  - INFUSION RELATED REACTION [None]
  - INTERNATIONAL NORMALISED RATIO INCREASED [None]
  - INTERVERTEBRAL DISC PROTRUSION [None]
  - LOBAR PNEUMONIA [None]
  - MALIGNANT NEOPLASM PROGRESSION [None]
  - MULTIPLE MYELOMA [None]
  - PLEURAL EFFUSION [None]
  - PRURITUS [None]
  - PULMONARY CONGESTION [None]
  - PULMONARY OEDEMA [None]
  - RENAL FAILURE ACUTE [None]
  - RENAL FAILURE CHRONIC [None]
  - RESPIRATORY FAILURE [None]
  - SKIN LESION [None]
  - SOMNOLENCE [None]
  - SPINAL COLUMN STENOSIS [None]
  - SPINAL COMPRESSION FRACTURE [None]
  - SPINAL CORD COMPRESSION [None]
  - SPINAL OSTEOARTHRITIS [None]
  - SYNCOPE [None]
  - VISION BLURRED [None]
  - WEIGHT DECREASED [None]
